FAERS Safety Report 4383411-2 (Version None)
Quarter: 2004Q2

REPORT INFORMATION
  Report Type: 
  Country: None (occurrence: None)
  Receive Date: 20040623
  Receipt Date: 20040614
  Transmission Date: 20050107
  Serious: Yes (Hospitalization)
  Sender: FDA-Public Use
  Company Number: PHEH2004US06484

PATIENT
  Age: 45 Year
  Sex: Female

DRUGS (11)
  1. ZELNORM [Suspect]
     Indication: IRRITABLE BOWEL SYNDROME
     Dosage: 6 MG, QD
     Route: 048
     Dates: start: 20040301, end: 20040614
  2. MIRALAX [Concomitant]
     Dosage: UNK, PRN
  3. NULEV [Concomitant]
  4. IMIPRAMINE [Concomitant]
     Indication: DEPRESSION
     Dates: start: 20010101
  5. OXYCONTIN [Concomitant]
     Indication: PAIN
     Dosage: 40 MG, BID
     Route: 048
     Dates: start: 20010101
  6. OXYCODONE [Concomitant]
  7. EFFEXOR [Concomitant]
     Indication: DEPRESSION
     Dates: start: 20010101
  8. FOSAMAX [Concomitant]
     Indication: OSTEOPOROSIS
     Dates: start: 20010101
  9. CLARINEX                                /USA/ [Concomitant]
  10. KLONOPIN [Concomitant]
  11. XANAX [Concomitant]
     Indication: ANXIETY
     Dosage: UNK, UNK
     Dates: start: 20010101

REACTIONS (4)
  - ABDOMINAL PAIN [None]
  - APPENDICECTOMY [None]
  - APPENDICITIS [None]
  - INTESTINAL SPASM [None]
